FAERS Safety Report 7877423-1 (Version None)
Quarter: 2011Q4

REPORT INFORMATION
  Report Type: 
  Country: None (occurrence: None)
  Receive Date: 20111031
  Receipt Date: 20111026
  Transmission Date: 20120403
  Serious: Yes (Hospitalization)
  Sender: FDA-Public Use
  Company Number: JP-ABBOTT-11P-087-0847439-00

PATIENT
  Sex: Male
  Weight: 58 kg

DRUGS (12)
  1. LOXOPROFEN SODIUM HYDRATE [Concomitant]
  2. LOPERAMIDE HCL [Concomitant]
     Indication: CROHN'S DISEASE
     Route: 048
  3. FAMOTIDINE [Concomitant]
     Indication: GASTRITIS PROPHYLAXIS
     Route: 048
  4. HUMIRA [Suspect]
     Dates: start: 20110202
  5. MESALAMINE [Concomitant]
     Indication: CROHN'S DISEASE
     Dosage: DAILY
     Route: 048
  6. HUMIRA [Suspect]
     Dates: start: 20110119, end: 20110119
  7. AZATHIOPRINE [Concomitant]
     Indication: CROHN'S DISEASE
     Dosage: DAILY
     Route: 048
  8. HUMIRA [Suspect]
     Indication: CROHN'S DISEASE
     Route: 058
     Dates: start: 20110106, end: 20110106
  9. KILLED ESCHERICHIA COLI SUSPENSION [Concomitant]
     Indication: CROHN'S DISEASE
     Route: 061
     Dates: start: 20110526
  10. POLAPREZINC [Concomitant]
     Indication: GASTRITIS PROPHYLAXIS
     Route: 048
  11. LOXOPROFEN SODIUM HYDRATE [Concomitant]
     Indication: PAIN PROPHYLAXIS
     Route: 048
  12. DICLOFENAC SODIUM [Concomitant]
     Indication: PRODUCT USED FOR UNKNOWN INDICATION
     Route: 048
     Dates: start: 20110512

REACTIONS (3)
  - ILEUS [None]
  - NASOPHARYNGITIS [None]
  - ANAL FISTULA [None]
